FAERS Safety Report 24069645 (Version 1)
Quarter: 2024Q3

REPORT INFORMATION
  Report Type: Report from Study
  Country: US (occurrence: US)
  Receive Date: 20240710
  Receipt Date: 20240710
  Transmission Date: 20241017
  Serious: No
  Sender: ROCHE
  Company Number: US-ROCHE-3289128

PATIENT
  Age: 82 Year
  Sex: Female

DRUGS (24)
  1. VABYSMO [Suspect]
     Active Substance: FARICIMAB\FARICIMAB-SVOA
     Indication: Neovascular age-related macular degeneration
     Dosage: INDEFINITELY, DATE OF SERVICE: 01/MAY/2024
     Route: 065
  2. VABYSMO [Suspect]
     Active Substance: FARICIMAB\FARICIMAB-SVOA
     Indication: Choroidal neovascularisation
  3. AVASTIN [Suspect]
     Active Substance: BEVACIZUMAB
     Indication: Neovascular age-related macular degeneration
     Dosage: DATE OF TREATMENT: 09/OCT/2017, 06/NOV/2017
     Route: 050
     Dates: start: 20170829
  4. AVASTIN [Suspect]
     Active Substance: BEVACIZUMAB
     Indication: Choroidal neovascularisation
  5. ALBUTEROL SULFATE [Concomitant]
     Active Substance: ALBUTEROL SULFATE
  6. AMOXICILLIN [Concomitant]
     Active Substance: AMOXICILLIN
  7. ASCORBIC ACID [Concomitant]
     Active Substance: ASCORBIC ACID
  8. AZITHROMYCIN [Concomitant]
     Active Substance: AZITHROMYCIN
  9. CALCIUM ACETATE [Concomitant]
     Active Substance: CALCIUM ACETATE
  10. CHOLECALCIFEROL [Concomitant]
     Active Substance: CHOLECALCIFEROL
  11. COD LIVER OIL [Concomitant]
     Active Substance: COD LIVER OIL
  12. COENZYME Q10 [Concomitant]
     Active Substance: DIETARY SUPPLEMENT\UBIDECARENONE
  13. FAMOTIDINE [Concomitant]
     Active Substance: FAMOTIDINE
  14. CODEINE PHOSPHATE\GUAIFENESIN [Concomitant]
     Active Substance: CODEINE PHOSPHATE\GUAIFENESIN
  15. MAGNESIUM [Concomitant]
     Active Substance: MAGNESIUM
  16. OLOPATADINE [Concomitant]
     Active Substance: OLOPATADINE
  17. OMEGA-3 FATTY ACIDS [Concomitant]
     Active Substance: OMEGA-3 FATTY ACIDS
  18. OMEPRAZOLE [Concomitant]
     Active Substance: OMEPRAZOLE
  19. PHYTONADIONE [Concomitant]
     Active Substance: PHYTONADIONE
  20. POLYVINYL ALCOHOL [Concomitant]
     Active Substance: POLYVINYL ALCOHOL
  21. PREDNISONE [Concomitant]
     Active Substance: PREDNISONE
  22. CODEINE\PROMETHAZINE [Concomitant]
     Active Substance: CODEINE\PROMETHAZINE
  23. THYROID [Concomitant]
     Active Substance: LEVOTHYROXINE\LIOTHYRONINE
  24. VITAMIN E [Concomitant]
     Active Substance: .ALPHA.-TOCOPHEROL

REACTIONS (4)
  - Off label use [Unknown]
  - Off label use [Unknown]
  - Eye pruritus [Unknown]
  - Dry eye [Unknown]
